FAERS Safety Report 9928650 (Version 2)
Quarter: 2014Q1

REPORT INFORMATION
  Report Type: Spontaneous
  Country: JP (occurrence: JP)
  Receive Date: 20140227
  Receipt Date: 20140306
  Transmission Date: 20141002
  Serious: Yes (Hospitalization)
  Sender: FDA-Public Use
  Company Number: JP-BAYER-2014-027715

PATIENT
  Age: 74 Year
  Sex: Female

DRUGS (1)
  1. BAYASPIRIN [Suspect]
     Dosage: UNK
     Route: 048

REACTIONS (1)
  - Diverticulum intestinal haemorrhagic [Recovering/Resolving]
